FAERS Safety Report 5603272-0 (Version None)
Quarter: 2008Q1

REPORT INFORMATION
  Report Type: 
  Country: None (occurrence: None)
  Receive Date: 20080125
  Receipt Date: 20080115
  Transmission Date: 20080703
  Serious: Yes (Disabling, Other)
  Sender: FDA-Public Use
  Company Number: GB-PFIZER INC-2008005216

PATIENT
  Age: 75 Year
  Sex: Male
  Weight: 91 kg

DRUGS (12)
  1. CHANTIX [Suspect]
     Indication: SMOKING CESSATION THERAPY
     Route: 048
     Dates: start: 20071210, end: 20071226
  2. BETAHISTINE [Concomitant]
  3. CALCICHEW-D3 [Concomitant]
  4. CANDESARTAN [Concomitant]
  5. DIGOXIN [Concomitant]
  6. FUROSEMIDE [Concomitant]
  7. GLYCERYL TRINITRATE [Concomitant]
     Route: 048
  8. NASONEX [Concomitant]
  9. QUININE SULFATE [Concomitant]
     Route: 048
  10. ALBUTEROL [Concomitant]
  11. TIOTROPIUM BROMIDE [Concomitant]
  12. WARFARIN SODIUM [Concomitant]

REACTIONS (4)
  - CHEST PAIN [None]
  - DYSPNOEA [None]
  - MUSCULOSKELETAL PAIN [None]
  - NECK PAIN [None]
